FAERS Safety Report 6275289-7 (Version None)
Quarter: 2009Q3

REPORT INFORMATION
  Report Type: 
  Country: None (occurrence: None)
  Receive Date: 20090721
  Receipt Date: 20090713
  Transmission Date: 20100115
  Serious: Yes (Hospitalization)
  Sender: FDA-Public Use
  Company Number: A0796680A

PATIENT
  Age: 72 Year
  Sex: Male

DRUGS (15)
  1. PAROXETINE HCL [Suspect]
     Indication: MAJOR DEPRESSION
     Dosage: 40MG PER DAY
     Route: 048
  2. PAXIL [Suspect]
     Indication: MAJOR DEPRESSION
     Dosage: 30MG PER DAY
     Route: 048
     Dates: start: 19930101
  3. LEVOTHYROXINE SODIUM [Concomitant]
  4. PROSCAR [Concomitant]
  5. DIOVAN [Concomitant]
  6. FAMOTIDINE [Concomitant]
  7. DITROPAN [Concomitant]
  8. COUMADIN [Concomitant]
  9. ACEBUTOLOL [Concomitant]
  10. AMLODIPINE [Concomitant]
  11. TRAZODONE [Concomitant]
  12. NITROSTAT [Concomitant]
  13. LEVSIN [Concomitant]
  14. VALIUM [Concomitant]
  15. VITAMIN B-12 [Concomitant]

REACTIONS (2)
  - ABDOMINAL PAIN UPPER [None]
  - POOR QUALITY SLEEP [None]
